FAERS Safety Report 6775093-7 (Version None)
Quarter: 2010Q2

REPORT INFORMATION
  Report Type: 
  Country: None (occurrence: None)
  Receive Date: 20100617
  Receipt Date: 20100604
  Transmission Date: 20101027
  Serious: Yes (Hospitalization, Disabling)
  Sender: FDA-Public Use
  Company Number: B0660818A

PATIENT
  Sex: Female

DRUGS (3)
  1. KIVEXA [Suspect]
     Indication: HIV INFECTION
     Dosage: 1TAB PER DAY
     Route: 048
     Dates: start: 20100421, end: 20100425
  2. STOCRIN [Concomitant]
     Indication: HIV INFECTION
     Dosage: 600MG PER DAY
     Route: 048
     Dates: start: 20100419
  3. COMBIVIR [Concomitant]
     Indication: HIV INFECTION
     Dosage: 1TAB PER DAY
     Route: 048
     Dates: start: 20100419, end: 20100420

REACTIONS (5)
  - COLD SWEAT [None]
  - DIARRHOEA [None]
  - MALAISE [None]
  - MYALGIA [None]
  - NAUSEA [None]
